FAERS Safety Report 6302504-3 (Version None)
Quarter: 2009Q3

REPORT INFORMATION
  Report Type: 
  Country: None (occurrence: None)
  Receive Date: 20090810
  Receipt Date: 20090729
  Transmission Date: 20100115
  Serious: Yes (Other)
  Sender: FDA-Public Use
  Company Number: PL-ROCHE-647679

PATIENT
  Age: 41 Year
  Sex: Male

DRUGS (11)
  1. MIRCERA [Suspect]
     Indication: ANAEMIA
     Route: 065
     Dates: start: 20081211
  2. MIRCERA [Suspect]
     Route: 065
     Dates: start: 20081223
  3. MIRCERA [Suspect]
     Route: 065
     Dates: start: 20090122
  4. MIRCERA [Suspect]
     Route: 065
     Dates: start: 20090219
  5. MIRCERA [Suspect]
     Route: 065
     Dates: start: 20090319
  6. MIRCERA [Suspect]
     Route: 065
     Dates: start: 20090416
  7. MIRCERA [Suspect]
     Route: 065
     Dates: start: 20090514
  8. MIRCERA [Suspect]
     Route: 065
     Dates: start: 20090610
  9. MIRCERA [Suspect]
     Route: 065
     Dates: start: 20090709
  10. PEG-INTRON [Suspect]
     Indication: HEPATITIS C
     Route: 065
  11. REBETOL [Suspect]
     Indication: HEPATITIS C
     Route: 065

REACTIONS (1)
  - ANAEMIA [None]
